FAERS Safety Report 10948714 (Version 1)
Quarter: 2015Q1

REPORT INFORMATION
  Report Type: Spontaneous
  Country: US (occurrence: None)
  Receive Date: 20150323
  Receipt Date: 20150323
  Transmission Date: 20150721
  Serious: Yes (Life-Threatening, Hospitalization, Other)
  Sender: FDA-Public Use
  Company Number: None

PATIENT
  Age: 64 Year
  Sex: Female
  Weight: 68.04 kg

DRUGS (6)
  1. FLUOXETINE [Concomitant]
     Active Substance: FLUOXETINE\FLUOXETINE HYDROCHLORIDE
  2. HCTZ [Concomitant]
     Active Substance: HYDROCHLOROTHIAZIDE
  3. LOSARTAN [Concomitant]
     Active Substance: LOSARTAN
  4. POTASSIUM [Concomitant]
     Active Substance: POTASSIUM
  5. TAMOXIFEN [Suspect]
     Active Substance: TAMOXIFEN
     Indication: NEOPLASM PROPHYLAXIS
     Route: 048
     Dates: start: 20150102, end: 20150106
  6. OCUVITE [Concomitant]
     Active Substance: VITAMINS

REACTIONS (18)
  - Decreased appetite [None]
  - Constipation [None]
  - Hypersensitivity [None]
  - Dry mouth [None]
  - Vomiting [None]
  - Asthenia [None]
  - Nervousness [None]
  - Balance disorder [None]
  - Speech disorder [None]
  - Drug hypersensitivity [None]
  - Dysgeusia [None]
  - Pollakiuria [None]
  - Thinking abnormal [None]
  - Parosmia [None]
  - Abdominal pain upper [None]
  - Chromaturia [None]
  - Retching [None]
  - Weight decreased [None]

NARRATIVE: CASE EVENT DATE: 20150106
